FAERS Safety Report 5528267-7 (Version None)
Quarter: 2007Q4

REPORT INFORMATION
  Report Type: 
  Country: None (occurrence: None)
  Receive Date: 20071109
  Receipt Date: 20070219
  Transmission Date: 20080405
  Serious: Yes (Hospitalization, Other)
  Sender: FDA-Public Use
  Company Number: PHEH2007US02293

PATIENT
  Age: 59 Year
  Sex: Female
  Weight: 74.8 kg

DRUGS (11)
  1. ESTRADERM [Suspect]
     Indication: MENORRHAGIA
     Dosage: 0.05 MG/DAY, Q4, TRANSDERMAL
     Route: 062
     Dates: start: 19960415, end: 19960909
  2. VIVELLE [Suspect]
     Indication: MENORRHAGIA
     Dosage: 0.05 MG/DAY, TRANSDERMAL
     Route: 062
     Dates: start: 19960611, end: 19980312
  3. PREMPRO [Suspect]
     Indication: MENORRHAGIA
     Dosage: 0.626 MG/5 MG, QD, ORAL
     Route: 048
     Dates: start: 19980421, end: 20020729
  4. PROVERA [Suspect]
     Indication: MENORRHAGIA
     Dosage: 5 MG, QD, ORAL
     Route: 048
     Dates: start: 19950801, end: 19980312
  5. MEDROXYPROGESTERONE [Suspect]
     Indication: MENORRHAGIA
     Dosage: 2.5 MG, QD, ORAL
     Route: 048
     Dates: start: 19960522, end: 19960830
  6. PREMARIN [Suspect]
     Indication: MENORRHAGIA
     Dosage: 0.625 MG, QD, ORAL
     Route: 048
  7. PROMETRIUM [Suspect]
     Indication: MENORRHAGIA
     Dosage: 200 MG, QD DAYS 15-30
     Dates: start: 20020814, end: 20021021
  8. ACTIVELLA [Suspect]
     Indication: MENORRHAGIA
     Dates: start: 20021022
  9. AYGESTIN [Suspect]
     Indication: MENORRHAGIA
     Dosage: 5 MG, QD, ORAL
     Route: 048
     Dates: start: 20021104, end: 20021121
  10. HYDROCHLOROTHIAZIDE [Concomitant]
  11. ACETYLSALICYLIC ACID SRT [Concomitant]

REACTIONS (20)
  - ANXIETY [None]
  - BIOPSY BREAST ABNORMAL [None]
  - BREAST CANCER IN SITU [None]
  - BREAST COSMETIC SURGERY [None]
  - BREAST RECONSTRUCTION [None]
  - DEPRESSION [None]
  - DIZZINESS [None]
  - DYSMENORRHOEA [None]
  - HOT FLUSH [None]
  - HYSTERECTOMY [None]
  - MALIGNANT BREAST LUMP REMOVAL [None]
  - MAMMOGRAM ABNORMAL [None]
  - MENORRHAGIA [None]
  - METRORRHAGIA [None]
  - MODIFIED RADICAL MASTECTOMY [None]
  - NECROSIS [None]
  - OESTROGEN RECEPTOR ASSAY POSITIVE [None]
  - OSTEOPENIA [None]
  - PROGESTERONE RECEPTOR ASSAY POSITIVE [None]
  - UTERINE LEIOMYOMA [None]
